FAERS Safety Report 11287079 (Version 1)
Quarter: 2015Q3

REPORT INFORMATION
  Report Type: Spontaneous
  Country: US (occurrence: US)
  Receive Date: 20150721
  Receipt Date: 20150721
  Transmission Date: 20151125
  Serious: No
  Sender: FDA-Public Use
  Company Number: US-UNITED THERAPEUTICS-UNT-2014-012336

PATIENT
  Age: 75 Year
  Sex: Female
  Weight: 47.17 kg

DRUGS (4)
  1. OPSUMIT [Concomitant]
     Active Substance: MACITENTAN
     Indication: PRODUCT USED FOR UNKNOWN INDICATION
  2. ADEMPAS [Concomitant]
     Active Substance: RIOCIGUAT
     Indication: PRODUCT USED FOR UNKNOWN INDICATION
  3. ORENITRAM [Suspect]
     Active Substance: TREPROSTINIL
     Indication: PULMONARY ARTERIAL HYPERTENSION
     Dosage: 10.25 MG, BID
     Route: 048
     Dates: start: 20140718
  4. ORENITRAM [Suspect]
     Active Substance: TREPROSTINIL
     Dosage: 10.50 MG, BID
     Route: 048
     Dates: start: 20140718

REACTIONS (4)
  - Vomiting [Unknown]
  - Nausea [Unknown]
  - Eructation [Unknown]
  - Nail disorder [Unknown]

NARRATIVE: CASE EVENT DATE: 201412
